FAERS Safety Report 11390047 (Version 2)
Quarter: 2016Q2

REPORT INFORMATION
  Report Type: Report from Study
  Country: US (occurrence: US)
  Receive Date: 20150818
  Receipt Date: 20160406
  Transmission Date: 20160815
  Serious: Yes (Other)
  Sender: FDA-Public Use
  Company Number: US-ROCHE-1622651

PATIENT
  Sex: Male

DRUGS (4)
  1. RITUXAN [Suspect]
     Active Substance: RITUXIMAB
     Route: 042
     Dates: start: 20150326
  2. RITUXAN [Suspect]
     Active Substance: RITUXIMAB
     Route: 042
  3. TYLENOL [Concomitant]
     Active Substance: ACETAMINOPHEN
     Indication: PAIN
  4. RITUXAN [Suspect]
     Active Substance: RITUXIMAB
     Indication: LYMPHOCYTIC LEUKAEMIA
     Route: 042
     Dates: start: 20150326, end: 20150427

REACTIONS (8)
  - Heart rate irregular [Recovered/Resolved]
  - Asthma [Recovered/Resolved]
  - Dyspnoea [Recovered/Resolved]
  - Drug intolerance [Unknown]
  - Urticaria [Recovered/Resolved]
  - Infusion related reaction [Unknown]
  - Urticaria [Unknown]
  - Erythema [Recovered/Resolved]
